FAERS Safety Report 6842539-5 (Version None)
Quarter: 2010Q3

REPORT INFORMATION
  Report Type: 
  Country: None (occurrence: None)
  Receive Date: 20100714
  Receipt Date: 20070731
  Transmission Date: 20110219
  Serious: No
  Sender: FDA-Public Use
  Company Number: US-PFIZER INC-2007064769

PATIENT
  Sex: Male
  Weight: 84.1 kg

DRUGS (3)
  1. CHANTIX [Suspect]
     Indication: SMOKING CESSATION THERAPY
     Dates: start: 20060101
  2. GEODON [Concomitant]
  3. ZOLOFT [Concomitant]

REACTIONS (3)
  - ABNORMAL DREAMS [None]
  - DRUG DOSE OMISSION [None]
  - THINKING ABNORMAL [None]
